FAERS Safety Report 4304003-7 (Version None)
Quarter: 2004Q1

REPORT INFORMATION
  Report Type: 
  Country: None (occurrence: None)
  Receive Date: 20040223
  Receipt Date: 20031111
  Transmission Date: 20041129
  Serious: No
  Sender: FDA-Public Use
  Company Number: PHEH2003US10382

PATIENT
  Age: 47 Year
  Sex: Female

DRUGS (2)
  1. ZELNORM [Suspect]
     Indication: IRRITABLE BOWEL SYNDROME
     Dosage: 6 MG, BID; 6 MG, QID
     Dates: start: 20030201
  2. MIRALAX [Concomitant]

REACTIONS (1)
  - ALOPECIA [None]
